FAERS Safety Report 4533396-0 (Version None)
Quarter: 2004Q4

REPORT INFORMATION
  Report Type: 
  Country: None (occurrence: None)
  Receive Date: 20041221
  Receipt Date: 20041115
  Transmission Date: 20050328
  Serious: Yes (Death, Hospitalization)
  Sender: FDA-Public Use
  Company Number: US-ROCHE-386457

PATIENT
  Age: 19 Year
  Sex: Male
  Weight: 67.1 kg

DRUGS (4)
  1. PEGASYS [Suspect]
     Indication: HEPATITIS C
     Dosage: STRENGTH: 180. DOSAGE REGIMEN: EVERY WEEK.
     Route: 058
     Dates: start: 20040518
  2. PEGASYS [Suspect]
     Route: 058
  3. COPEGUS [Suspect]
     Indication: HEPATITIS C
     Route: 048
  4. COPEGUS [Suspect]
     Dosage: DOSAGE REGIMEN: 400 EVERY MORNING (QAM), 100 EVERY EVENING (QPM)
     Route: 048
     Dates: start: 20040518

REACTIONS (3)
  - CARDIAC ARREST [None]
  - DRUG ABUSER [None]
  - TREATMENT NONCOMPLIANCE [None]
